FAERS Safety Report 20015975 (Version 1)
Quarter: 2021Q4

REPORT INFORMATION
  Report Type: Spontaneous
  Country: US (occurrence: None)
  Receive Date: 20211102
  Receipt Date: 20211102
  Transmission Date: 20220303
  Serious: Yes (Death, Life-Threatening, Hospitalization, Other)
  Sender: FDA-Public Use
  Company Number: None

PATIENT
  Age: 32 Year
  Sex: Female
  Weight: 107 kg

DRUGS (15)
  1. CASIRIVIMAB [Suspect]
     Active Substance: CASIRIVIMAB
     Indication: SARS-CoV-2 test positive
     Dosage: FREQUENCY : ONCE;?
     Route: 042
     Dates: start: 20211013, end: 20211013
  2. IMDEVIMAB [Suspect]
     Active Substance: IMDEVIMAB
     Indication: SARS-CoV-2 test positive
     Dosage: FREQUENCY : ONCE;?
     Route: 042
     Dates: start: 20211013, end: 20211013
  3. MORPHINE [Concomitant]
     Active Substance: MORPHINE
     Dates: start: 20211012, end: 20211013
  4. MAALOX ANTACID [Concomitant]
     Active Substance: ALUMINUM HYDROXIDE\DIMETHICONE\MAGNESIUM HYDROXIDE
     Dates: start: 20211012, end: 20211013
  5. FAMOTIDINE [Concomitant]
     Active Substance: FAMOTIDINE
     Dates: start: 20211013
  6. ENOXAPARIN [Concomitant]
     Active Substance: ENOXAPARIN
     Dates: start: 20211012
  7. FLUTICASONE [Concomitant]
     Active Substance: FLUTICASONE
     Dates: start: 20211013
  8. ONDANSETRON [Concomitant]
     Active Substance: ONDANSETRON
     Dates: start: 20211012, end: 20211013
  9. ISOVUE 370 [Concomitant]
     Active Substance: IOPAMIDOL
     Dates: start: 20211012
  10. SODIUM CHLORIDE [Concomitant]
     Active Substance: SODIUM CHLORIDE
     Dates: start: 20211012
  11. LACTATED RINGERS SOLUTION [Concomitant]
     Active Substance: CALCIUM CHLORIDE\POTASSIUM CHLORIDE\SODIUM CHLORIDE\SODIUM LACTATE
     Dates: start: 20211012
  12. viscous lidocaine solution [Concomitant]
     Dates: start: 20211012, end: 20211013
  13. BENZONATATE [Concomitant]
     Active Substance: BENZONATATE
     Dates: start: 20211013
  14. FERROUS SULFATE [Concomitant]
     Active Substance: FERROUS SULFATE
  15. VITAMINS [Concomitant]
     Active Substance: VITAMINS

REACTIONS (16)
  - Cough [None]
  - Nausea [None]
  - Vomiting [None]
  - Malaise [None]
  - Chills [None]
  - Pain [None]
  - Urine output decreased [None]
  - Confusional state [None]
  - Foetal death [None]
  - Exposure during pregnancy [None]
  - Caesarean section [None]
  - Septic shock [None]
  - Acute kidney injury [None]
  - Liver injury [None]
  - Small size placenta [None]
  - Umbilical cord abnormality [None]

NARRATIVE: CASE EVENT DATE: 20211020
